FAERS Safety Report 14156828 (Version 1)
Quarter: 2017Q4

REPORT INFORMATION
  Report Type: Not Available
  Country: None (occurrence: US)
  Receive Date: 20171103
  Receipt Date: 20171103
  Transmission Date: 20180321
  Serious: No
  Sender: FDA-Public Use
  Company Number: US-AKORN-71072

PATIENT
  Sex: Male

DRUGS (1)
  1. DORZOLAMIDE HCL-TIMOLOL MALEATE OPHTHALMIC SOLUTION [Suspect]
     Active Substance: DORZOLAMIDE HYDROCHLORIDE\TIMOLOL MALEATE

REACTIONS (2)
  - Eye irritation [Recovered/Resolved]
  - Eye pruritus [Recovered/Resolved]
